FAERS Safety Report 6813226-4 (Version None)
Quarter: 2010Q3

REPORT INFORMATION
  Report Type: 
  Country: None (occurrence: None)
  Receive Date: 20100701
  Receipt Date: 20100623
  Transmission Date: 20110219
  Serious: Yes (Other)
  Sender: FDA-Public Use
  Company Number: US-PFIZER INC-2010079171

PATIENT
  Sex: Male
  Weight: 70.295 kg

DRUGS (3)
  1. NEURONTIN [Suspect]
     Indication: NEURALGIA
     Dosage: 100 MG, 2X/DAY
     Route: 048
     Dates: start: 20100301, end: 20100601
  2. NEURONTIN [Suspect]
     Indication: NEUROPATHY PERIPHERAL
  3. COZAAR [Concomitant]
     Indication: HYPERTENSION
     Dosage: 50 MG, UNK

REACTIONS (2)
  - AMBLYOPIA [None]
  - VISUAL ACUITY REDUCED [None]
